FAERS Safety Report 20923993 (Version 1)
Quarter: 2022Q2

REPORT INFORMATION
  Report Type: Spontaneous
  Country: CN (occurrence: CN)
  Receive Date: 20220607
  Receipt Date: 20220607
  Transmission Date: 20220721
  Serious: Yes (Death, Other)
  Sender: FDA-Public Use
  Company Number: CN-PFIZER INC-202200761794

PATIENT
  Age: 67 Year
  Sex: Male
  Weight: 60 kg

DRUGS (22)
  1. PIPERACILLIN SODIUM\TAZOBACTAM SODIUM [Suspect]
     Active Substance: PIPERACILLIN SODIUM\TAZOBACTAM SODIUM
     Indication: Thermal burn
     Dosage: 4.5 G, 3X/DAY
  2. PIPERACILLIN SODIUM\TAZOBACTAM SODIUM [Suspect]
     Active Substance: PIPERACILLIN SODIUM\TAZOBACTAM SODIUM
     Indication: Respiratory fume inhalation disorder
  3. PIPERACILLIN SODIUM\TAZOBACTAM SODIUM [Suspect]
     Active Substance: PIPERACILLIN SODIUM\TAZOBACTAM SODIUM
     Indication: Shock
  4. PIPERACILLIN SODIUM\TAZOBACTAM SODIUM [Suspect]
     Active Substance: PIPERACILLIN SODIUM\TAZOBACTAM SODIUM
     Indication: Anti-infective therapy
  5. LINEZOLID [Suspect]
     Active Substance: LINEZOLID
     Indication: Thermal burn
     Dosage: 0.6 G, 2X/DAY (ON THE THIRD DAY)
  6. LINEZOLID [Suspect]
     Active Substance: LINEZOLID
     Indication: Respiratory fume inhalation disorder
     Dosage: 0.6 G, 2X/DAY
     Route: 042
     Dates: start: 202102
  7. LINEZOLID [Suspect]
     Active Substance: LINEZOLID
     Indication: Shock
  8. LINEZOLID [Suspect]
     Active Substance: LINEZOLID
     Indication: Anti-infective therapy
  9. VORICONAZOLE [Suspect]
     Active Substance: VORICONAZOLE
     Indication: Thermal burn
     Dosage: 200 MG, 2X/DAY
     Dates: start: 202102
  10. VORICONAZOLE [Suspect]
     Active Substance: VORICONAZOLE
     Indication: Respiratory fume inhalation disorder
  11. VORICONAZOLE [Suspect]
     Active Substance: VORICONAZOLE
     Indication: Shock
  12. VORICONAZOLE [Suspect]
     Active Substance: VORICONAZOLE
     Indication: Anti-infective therapy
  13. ITRACONAZOLE [Suspect]
     Active Substance: ITRACONAZOLE
     Indication: Thermal burn
     Dosage: 200 MG, 1X/DAY (ON THE THIRD DAY)
  14. ITRACONAZOLE [Suspect]
     Active Substance: ITRACONAZOLE
     Indication: Respiratory fume inhalation disorder
  15. ITRACONAZOLE [Suspect]
     Active Substance: ITRACONAZOLE
     Indication: Shock
  16. ITRACONAZOLE [Suspect]
     Active Substance: ITRACONAZOLE
     Indication: Anti-infective therapy
  17. OMEPRAZOLE [Concomitant]
     Active Substance: OMEPRAZOLE
     Indication: Prophylaxis against gastrointestinal ulcer
     Dosage: 40 MG, DAILY
  18. MEROPENEM [Concomitant]
     Active Substance: MEROPENEM
     Indication: Thermal burn
     Dosage: 1 G, 3X/DAY (ON THE THIRD DAY)
  19. MEROPENEM [Concomitant]
     Active Substance: MEROPENEM
     Indication: Respiratory fume inhalation disorder
     Dosage: 1 G, 3X/DAY
     Dates: start: 202102
  20. MEROPENEM [Concomitant]
     Active Substance: MEROPENEM
     Indication: Shock
  21. MEROPENEM [Concomitant]
     Active Substance: MEROPENEM
     Indication: Anti-infective therapy
  22. SILVER SULFADIAZENE [Concomitant]
     Active Substance: SILVER SULFADIAZINE
     Indication: Wound treatment
     Dosage: UNK

REACTIONS (2)
  - Aspergillus infection [Fatal]
  - Drug ineffective [Fatal]
